FAERS Safety Report 13482535 (Version 1)
Quarter: 2017Q2

REPORT INFORMATION
  Report Type: Spontaneous
  Country: US (occurrence: US)
  Receive Date: 20170426
  Receipt Date: 20170426
  Transmission Date: 20170830
  Serious: No
  Sender: FDA-Public Use
  Company Number: US-ASTRAZENECA-2017SE43001

PATIENT
  Age: 758 Month
  Sex: Male
  Weight: 75.8 kg

DRUGS (5)
  1. SEROQUEL [Suspect]
     Active Substance: QUETIAPINE FUMARATE
     Indication: BIPOLAR DISORDER
     Dosage: 200.0MG UNKNOWN
     Route: 048
  2. SEROQUEL [Suspect]
     Active Substance: QUETIAPINE FUMARATE
     Indication: BIPOLAR DISORDER
     Dosage: DOSE REDUCED UNKNOWN
     Route: 048
  3. SEROQUEL [Suspect]
     Active Substance: QUETIAPINE FUMARATE
     Indication: BIPOLAR DISORDER
     Route: 048
  4. SEROQUEL [Suspect]
     Active Substance: QUETIAPINE FUMARATE
     Indication: BIPOLAR DISORDER
     Dosage: 100.0MG UNKNOWN
     Route: 048
  5. WELLBUTRIN XL [Concomitant]
     Active Substance: BUPROPION HYDROCHLORIDE
     Indication: BIPOLAR DISORDER
     Dates: start: 2007

REACTIONS (6)
  - Feeling abnormal [Unknown]
  - Hypersomnia [Unknown]
  - Depressed mood [Unknown]
  - Fatigue [Unknown]
  - Alopecia [Recovered/Resolved]
  - Glucose tolerance impaired [Unknown]

NARRATIVE: CASE EVENT DATE: 201701
